FAERS Safety Report 9023325 (Version 1)
Quarter: 2013Q1

REPORT INFORMATION
  Report Type: Spontaneous
  Country: US (occurrence: US)
  Receive Date: 20130120
  Receipt Date: 20130120
  Transmission Date: 20140127
  Serious: No
  Sender: FDA-Public Use
  Company Number: US-009507513-1301USA004153

PATIENT
  Sex: Female

DRUGS (3)
  1. AZASITE [Suspect]
     Dosage: 1 DROP IN EACH EYE DAILY
     Route: 047
     Dates: start: 20130104
  2. AZASITE [Suspect]
     Dosage: 1 DROP IN EACH TWICE DAILY
     Route: 047
     Dates: start: 20130105
  3. AZASITE [Suspect]
     Dosage: 1 DROP IN EACH EYE DAILY
     Route: 047
     Dates: start: 20130106

REACTIONS (4)
  - Drug dose omission [Unknown]
  - Inappropriate schedule of drug administration [Unknown]
  - Product quality issue [Unknown]
  - No adverse event [Unknown]
